FAERS Safety Report 11737232 (Version 1)
Quarter: 2015Q4

REPORT INFORMATION
  Report Type: Spontaneous
  Country: US (occurrence: None)
  Receive Date: 20151112
  Receipt Date: 20151112
  Transmission Date: 20160304
  Serious: Yes (Disabling)
  Sender: FDA-Public Use
  Company Number: None

PATIENT
  Age: 77 Year
  Sex: Male
  Weight: 88.45 kg

DRUGS (6)
  1. C-PAP MACHINE [Concomitant]
     Active Substance: DEVICE
  2. MULTIVITAMIN [Concomitant]
     Active Substance: VITAMINS
  3. SAW PALMETTO [Concomitant]
     Active Substance: SAW PALMETTO
  4. CIALIS [Suspect]
     Active Substance: TADALAFIL
     Indication: PROSTATOMEGALY
     Dosage: 1/DAY
     Route: 048
     Dates: start: 20151012, end: 20151017
  5. CIALIS [Suspect]
     Active Substance: TADALAFIL
     Indication: ERECTILE DYSFUNCTION
     Dosage: 1/DAY
     Route: 048
     Dates: start: 20151012, end: 20151017
  6. XYREM [Concomitant]
     Active Substance: SODIUM OXYBATE

REACTIONS (4)
  - Back pain [None]
  - Pain in extremity [None]
  - Initial insomnia [None]
  - Musculoskeletal pain [None]

NARRATIVE: CASE EVENT DATE: 20151012
